FAERS Safety Report 8990973 (Version 1)
Quarter: 2012Q4

REPORT INFORMATION
  Report Type: Spontaneous
  Country: GB (occurrence: None)
  Receive Date: 20121220
  Receipt Date: 20121220
  Transmission Date: 20130627
  Serious: Yes (Hospitalization)
  Sender: FDA-Public Use
  Company Number: 2012SUN00335

PATIENT
  Age: 56 Year
  Sex: Female
  Weight: 62 kg

DRUGS (3)
  1. CARBOPLATIN [Suspect]
     Indication: OVARIAN CANCER
     Route: 042
     Dates: start: 20110518
  2. FARLETUZUMAB [Suspect]
     Indication: OVARIAN CANCER
     Route: 042
     Dates: start: 20110518
  3. PACLITAXEL (PACLITAXEL) [Suspect]
     Indication: OVARIAN CANCER
     Route: 042
     Dates: start: 20110518

REACTIONS (7)
  - Blood creatinine decreased [None]
  - Blood alkaline phosphatase increased [None]
  - Fatigue [None]
  - Haematocrit decreased [None]
  - Haemoglobin decreased [None]
  - Neutrophil count decreased [None]
  - Red blood cell count decreased [None]
